FAERS Safety Report 23662893 (Version 1)
Quarter: 2024Q1

REPORT INFORMATION
  Report Type: Spontaneous
  Country: US (occurrence: US)
  Receive Date: 20240322
  Receipt Date: 20240322
  Transmission Date: 20240410
  Serious: Yes (Hospitalization, Other)
  Sender: FDA-Public Use
  Company Number: US-SUN PHARMACEUTICAL INDUSTRIES LTD-2024R1-437411

PATIENT
  Age: 68 Year
  Sex: Male

DRUGS (2)
  1. FEXOFENADINE\PSEUDOEPHEDRINE [Suspect]
     Active Substance: FEXOFENADINE\PSEUDOEPHEDRINE
     Indication: Product used for unknown indication
     Dosage: UNK
  2. POLYETHYLENE GLYCOL [Suspect]
     Active Substance: POLYETHYLENE GLYCOL
     Indication: Product used for unknown indication
     Dosage: UNK

REACTIONS (3)
  - Dyspnoea [Recovered/Resolved]
  - Respiratory distress [Recovered/Resolved]
  - Accidental exposure to product [Unknown]
